FAERS Safety Report 6642932-X (Version None)
Quarter: 2010Q1

REPORT INFORMATION
  Report Type: 
  Country: None (occurrence: None)
  Receive Date: 20100319
  Receipt Date: 20100308
  Transmission Date: 20100710
  Serious: Yes (Other)
  Sender: FDA-Public Use
  Company Number: US-JNJFOC-20091102185

PATIENT
  Sex: Female

DRUGS (2)
  1. DOXORUBICIN HCL [Suspect]
     Indication: BILE DUCT CANCER
     Dosage: 3 CYCLES
     Route: 042
  2. XELODA [Suspect]
     Indication: BILE DUCT CANCER
     Route: 065

REACTIONS (5)
  - BLISTER [None]
  - HEADACHE [None]
  - OFF LABEL USE [None]
  - STOMATITIS [None]
  - VISUAL IMPAIRMENT [None]
